FAERS Safety Report 6677563-9 (Version None)
Quarter: 2010Q2

REPORT INFORMATION
  Report Type: 
  Country: None (occurrence: None)
  Receive Date: 20100412
  Receipt Date: 20100215
  Transmission Date: 20101027
  Serious: No
  Sender: FDA-Public Use
  Company Number: US-ALEXION-A201000213

PATIENT
  Sex: Female

DRUGS (7)
  1. SOLIRIS [Suspect]
     Dosage: 600 MG, SINGLE QW
     Route: 042
     Dates: start: 20090805, end: 20090805
  2. SOLIRIS [Suspect]
     Dosage: PARTIAL 600 MG INFUSION
     Route: 042
     Dates: start: 20090813, end: 20090813
  3. SOLIRIS [Suspect]
     Dosage: 600 MG, QW
     Route: 042
     Dates: start: 20090827, end: 20090903
  4. SOLIRIS [Suspect]
     Dosage: 900 MG, Q2W
     Dates: start: 20090910
  5. ATARAX [Concomitant]
     Indication: PREMEDICATION
     Dosage: 25 MG, SINGLE PRIOR TO SOLIRIS INFUSION
     Route: 048
  6. DECADRON [Concomitant]
     Indication: PREMEDICATION
     Dosage: 4 MG, SINGLE PRIOR TO SOLIRIS INFUSION
     Route: 042
  7. ZANTAC                             /00550802/ [Concomitant]
     Indication: PREMEDICATION
     Dosage: 50 MG, SINGLE PRIOR TO SOLIRIS INFUSION
     Route: 042

REACTIONS (4)
  - BLOOD PRESSURE ABNORMAL [None]
  - DYSPNOEA [None]
  - HEART RATE INCREASED [None]
  - OXYGEN SATURATION DECREASED [None]
